FAERS Safety Report 7109656-6 (Version None)
Quarter: 2010Q4

REPORT INFORMATION
  Report Type: 
  Country: None (occurrence: None)
  Receive Date: 20101115
  Receipt Date: 20101115
  Transmission Date: 20110411
  Serious: Yes (Life-Threatening, Hospitalization, Other)
  Sender: FDA-Public Use
  Company Number: None

PATIENT
  Age: 11 Month
  Sex: Male
  Weight: 9.5255 kg

DRUGS (1)
  1. FLORASTOR KIDS 1 PACKET UNKNOWN [Suspect]
     Indication: DIARRHOEA
     Dates: start: 20100706, end: 20100715

REACTIONS (1)
  - INTUSSUSCEPTION [None]
